FAERS Safety Report 24674265 (Version 1)
Quarter: 2024Q4

REPORT INFORMATION
  Report Type: Spontaneous
  Country: US (occurrence: US)
  Receive Date: 20241128
  Receipt Date: 20241128
  Transmission Date: 20250114
  Serious: Yes (Hospitalization, Other)
  Sender: NOVITIUM PHARMA
  Company Number: US-NOVITIUMPHARMA-2024USNVP02634

PATIENT
  Age: 53 Year
  Sex: Male

DRUGS (7)
  1. PREDNISONE [Suspect]
     Active Substance: PREDNISONE
     Indication: Organising pneumonia
     Dosage: HIGH-DOSE PREDNISONE
  2. DEXAMETHASONE [Suspect]
     Active Substance: DEXAMETHASONE
     Indication: COVID-19
  3. REMDESIVIR [Concomitant]
     Active Substance: REMDESIVIR
     Indication: COVID-19
  4. VANCOMYCIN [Concomitant]
     Active Substance: VANCOMYCIN
     Indication: Pneumonia bacterial
  5. PIPERACILLIN SODIUM\TAZOBACTAM SODIUM [Concomitant]
     Active Substance: PIPERACILLIN SODIUM\TAZOBACTAM SODIUM
     Indication: Pneumonia bacterial
  6. FLUCONAZOLE [Concomitant]
     Active Substance: FLUCONAZOLE
     Indication: Product used for unknown indication
  7. HEPARIN [Concomitant]
     Active Substance: HEPARIN SODIUM
     Indication: Pulmonary embolism

REACTIONS (2)
  - Pneumonia cryptococcal [Unknown]
  - Off label use [Unknown]
